FAERS Safety Report 16135567 (Version 1)
Quarter: 2019Q1

REPORT INFORMATION
  Report Type: Spontaneous
  Country: US (occurrence: US)
  Receive Date: 20190329
  Receipt Date: 20190329
  Transmission Date: 20190418
  Serious: Yes (Other)
  Sender: FDA-Public Use
  Company Number: US-PURDUE PHARMA-USA-2019-0146658

PATIENT
  Sex: Female
  Weight: 74.38 kg

DRUGS (3)
  1. OXYCONTIN [Suspect]
     Active Substance: OXYCODONE HYDROCHLORIDE
     Indication: PAIN
     Route: 048
  2. EMBEDA [Suspect]
     Active Substance: MORPHINE SULFATE\NALTREXONE HYDROCHLORIDE
     Indication: PAIN
     Dosage: 60 MG, BID
     Route: 048
     Dates: end: 201802
  3. VICODIN [Suspect]
     Active Substance: ACETAMINOPHEN\HYDROCODONE BITARTRATE
     Indication: PAIN
     Route: 048

REACTIONS (5)
  - Cataract operation [Unknown]
  - Spinal operation [Unknown]
  - Hip arthroplasty [Unknown]
  - Inadequate analgesia [Unknown]
  - Neck surgery [Unknown]
